FAERS Safety Report 8248241-X (Version None)
Quarter: 2012Q1

REPORT INFORMATION
  Report Type: 
  Country: None (occurrence: None)
  Receive Date: 20120330
  Receipt Date: 20120319
  Transmission Date: 20120608
  Serious: Yes (Death)
  Sender: FDA-Public Use
  Company Number: GB-ROCHE-1006858

PATIENT
  Sex: Female

DRUGS (1)
  1. MABTHERA [Suspect]
     Indication: RHEUMATOID ARTHRITIS
     Dosage: LAST DOSE PRIOR TO SAE: 13/APR/2011
     Route: 065
     Dates: start: 20090112

REACTIONS (2)
  - DEATH [None]
  - GLIOBLASTOMA MULTIFORME [None]
